FAERS Safety Report 5033338-8 (Version None)
Quarter: 2006Q2

REPORT INFORMATION
  Report Type: 
  Country: None (occurrence: None)
  Receive Date: 20060623
  Receipt Date: 20060614
  Transmission Date: 20061013
  Serious: Yes (Other)
  Sender: FDA-Public Use
  Company Number: US-JNJFOC-20060603414

PATIENT
  Sex: Female

DRUGS (3)
  1. DOXIL [Suspect]
     Indication: OVARIAN CANCER
     Route: 042
  2. FOSAMAX [Concomitant]
     Indication: OSTEOPOROSIS
  3. VITAMINS [Concomitant]

REACTIONS (6)
  - DERMATITIS CONTACT [None]
  - ERYTHEMA [None]
  - EXTRAVASATION [None]
  - INJECTION SITE EXTRAVASATION [None]
  - SKIN BURNING SENSATION [None]
  - SKIN NECROSIS [None]
